FAERS Safety Report 15668214 (Version 1)
Quarter: 2018Q4

REPORT INFORMATION
  Report Type: Spontaneous
  Country: JP (occurrence: JP)
  Receive Date: 20181129
  Receipt Date: 20181129
  Transmission Date: 20190205
  Serious: Yes (Other)
  Sender: FDA-Public Use
  Company Number: JP-AMGEN-JPNSP2018169504

PATIENT
  Age: 80 Year
  Sex: Female

DRUGS (1)
  1. PRALIA [Suspect]
     Active Substance: DENOSUMAB
     Indication: OSTEOPOROSIS
     Dosage: 60 MG, 5 TIMES
     Route: 065
     Dates: start: 201610

REACTIONS (1)
  - Lung neoplasm malignant [Not Recovered/Not Resolved]
